FAERS Safety Report 22148233 (Version 4)
Quarter: 2023Q2

REPORT INFORMATION
  Report Type: Spontaneous
  Country: IT (occurrence: IT)
  Receive Date: 20230328
  Receipt Date: 20230518
  Transmission Date: 20230722
  Serious: Yes (Other)
  Sender: FDA-Public Use
  Company Number: IT-GlaxoSmithKline-IT2023GSK041192

PATIENT
  Age: 56 Year
  Sex: Male

DRUGS (11)
  1. PREDNISONE [Suspect]
     Active Substance: PREDNISONE
     Indication: Diffuse large B-cell lymphoma
     Dosage: 100 MILLIGRAM (ON DAY 1-5, AND ON DAY 21)
     Route: 048
  2. PREDNISONE [Suspect]
     Active Substance: PREDNISONE
     Dosage: 100 MILLIGRAM, Q21D (R-CHOP-21 PLUS 2R THERAPY; O)
     Route: 048
  3. LAMIVUDINE [Suspect]
     Active Substance: LAMIVUDINE
     Indication: Antiviral prophylaxis
     Dosage: 100 MILLIGRAM, QD, (DAILY)
     Route: 048
  4. LAMIVUDINE [Suspect]
     Active Substance: LAMIVUDINE
     Dosage: 100 MG/DAY FROM 1 WK PRIOR TO THE
     Route: 048
     Dates: start: 201201, end: 201712
  5. RITUXIMAB [Suspect]
     Active Substance: RITUXIMAB
     Indication: Diffuse large B-cell lymphoma
     Dosage: 375 MILLIGRAM/SQ. METER (ON DAY 1, 6 AND 21 DAY)
     Route: 065
  6. DOXORUBICIN [Suspect]
     Active Substance: DOXORUBICIN
     Indication: Diffuse large B-cell lymphoma
     Dosage: 50 MILLIGRAM/SQ. METER
     Route: 065
  7. CYCLOPHOSPHAMIDE [Suspect]
     Active Substance: CYCLOPHOSPHAMIDE
     Indication: Diffuse large B-cell lymphoma
     Dosage: 750 MILLIGRAM/SQ. METER
     Route: 042
  8. VINCRISTINE [Suspect]
     Active Substance: VINCRISTINE
     Indication: Diffuse large B-cell lymphoma
     Dosage: UNK (1.4 MG/M2, MAXIMUM DOSE 2 MG)
     Route: 065
  9. SULFAMETHOXAZOLE\TRIMETHOPRIM [Concomitant]
     Active Substance: SULFAMETHOXAZOLE\TRIMETHOPRIM
     Indication: Antibiotic prophylaxis
     Dosage: UNK
     Route: 065
  10. ACYCLOVIR [Concomitant]
     Active Substance: ACYCLOVIR
     Indication: Antiviral prophylaxis
     Dosage: UNK
     Route: 065
  11. GRANULOCYTE COLONY-STIMULATING FACTOR NOS [Concomitant]
     Active Substance: GRANULOCYTE COLONY-STIMULATING FACTOR NOS
     Indication: Antibiotic prophylaxis
     Dosage: UNK
     Route: 065

REACTIONS (2)
  - Hepatitis B reactivation [Recovered/Resolved]
  - Drug ineffective [Unknown]
